FAERS Safety Report 24119195 (Version 1)
Quarter: 2024Q3

REPORT INFORMATION
  Report Type: Spontaneous
  Country: US (occurrence: None)
  Receive Date: 20240718
  Receipt Date: 20240718
  Transmission Date: 20241017
  Serious: Yes (Hospitalization)
  Sender: Public
  Company Number: None

PATIENT
  Age: 3 Year
  Sex: Male

DRUGS (1)
  1. NUWIQ [Suspect]
     Active Substance: ANTIHEMOPHILIC FACTOR, HUMAN RECOMBINANT
     Indication: Factor VIII activity decreased
     Dosage: OTHER QUANTITY : 535-612 UNITS;?FREQUENCY : UNKNOWN;?OTHER ROUTE : SLOW IV PUSH;  3 DAYS A WEEK?
     Route: 050
     Dates: start: 202407

REACTIONS (2)
  - Fall [None]
  - Haemarthrosis [None]

NARRATIVE: CASE EVENT DATE: 20240714
